FAERS Safety Report 13592057 (Version 1)
Quarter: 2017Q2

REPORT INFORMATION
  Report Type: Spontaneous
  Country: DE (occurrence: DE)
  Receive Date: 20170530
  Receipt Date: 20170530
  Transmission Date: 20170830
  Serious: Yes (Other)
  Sender: FDA-Public Use
  Company Number: DE-PFIZER INC-2017235282

PATIENT

DRUGS (3)
  1. IBUPROFEN. [Suspect]
     Active Substance: IBUPROFEN
     Indication: EAR PAIN
  2. IBUPROFEN. [Suspect]
     Active Substance: IBUPROFEN
     Indication: INFLUENZA LIKE ILLNESS
  3. IBUPROFEN. [Suspect]
     Active Substance: IBUPROFEN
     Indication: RESPIRATORY TRACT INFECTION
     Dosage: 400 MG, 1X/DAY (3 TRIMESTER,BETWEEN GW 36 0/7 AND 37 0/7)
     Route: 064

REACTIONS (3)
  - Maternal exposure during pregnancy [Recovered/Resolved]
  - Foetal monitoring abnormal [Recovered/Resolved]
  - Foetal hypokinesia [Recovered/Resolved]
